FAERS Safety Report 5151628-5 (Version None)
Quarter: 2006Q4

REPORT INFORMATION
  Report Type: 
  Country: None (occurrence: None)
  Receive Date: 20061115
  Receipt Date: 20060616
  Transmission Date: 20070319
  Serious: No
  Sender: FDA-Public Use
  Company Number: US-BRISTOL-MYERS SQUIBB COMPANY-13415187

PATIENT
  Age: 55 Year
  Sex: Male
  Weight: 76 kg

DRUGS (9)
  1. SUSTIVA [Suspect]
     Indication: HIV INFECTION
     Route: 048
     Dates: start: 20060301
  2. COMBIVIR [Concomitant]
  3. VIREAD [Concomitant]
  4. FLOVENT [Concomitant]
  5. SEREVENT [Concomitant]
  6. MAXAIR [Concomitant]
  7. SINGULAIR [Concomitant]
  8. ZOCOR [Concomitant]
  9. IBUPROFEN [Concomitant]

REACTIONS (1)
  - ABNORMAL DREAMS [None]
